FAERS Safety Report 9685353 (Version 2)
Quarter: 2013Q4

REPORT INFORMATION
  Report Type: Spontaneous
  Country: LU (occurrence: LU)
  Receive Date: 20131113
  Receipt Date: 20131113
  Transmission Date: 20140711
  Serious: Yes (Life-Threatening, Other)
  Sender: FDA-Public Use
  Company Number: PHHY2013LU119713

PATIENT
  Sex: Male

DRUGS (3)
  1. VOLTAREN [Suspect]
     Indication: BACK PAIN
     Dosage: 75 MG, UNK
     Route: 030
     Dates: start: 201302, end: 201302
  2. ST. JOHN^S WORT [Concomitant]
     Indication: DEPRESSION
     Dosage: UNK UKN, UNK
  3. MAGNE B6 [Concomitant]
     Dosage: UNK UKN, UNK

REACTIONS (11)
  - Feeling abnormal [Unknown]
  - Intraocular pressure increased [Not Recovered/Not Resolved]
  - Renal impairment [Not Recovered/Not Resolved]
  - Injection site pain [Not Recovered/Not Resolved]
  - Vertigo [Not Recovered/Not Resolved]
  - Nausea [Not Recovered/Not Resolved]
  - Hypertension [Not Recovered/Not Resolved]
  - Dyspnoea [Not Recovered/Not Resolved]
  - Confusional state [Unknown]
  - Anxiety [Unknown]
  - Overdose [Unknown]
